FAERS Safety Report 5483020-8 (Version None)
Quarter: 2007Q4

REPORT INFORMATION
  Report Type: 
  Country: None (occurrence: None)
  Receive Date: 20071005
  Receipt Date: 20070919
  Transmission Date: 20080405
  Serious: Yes (Hospitalization)
  Sender: FDA-Public Use
  Company Number: 2007EU002114

PATIENT
  Age: 15 Year
  Sex: Female

DRUGS (3)
  1. TACROLIMUS [Suspect]
     Indication: LIVER TRANSPLANT
  2. LAMIVUDINE [Suspect]
     Indication: HEPATITIS B
  3. MYCOPHENOLATE MOFETIL [Concomitant]

REACTIONS (7)
  - ABASIA [None]
  - COMPLICATIONS OF TRANSPLANTED LIVER [None]
  - FANCONI SYNDROME ACQUIRED [None]
  - HEPATITIS B [None]
  - HYPERGLYCAEMIA [None]
  - MITOCHONDRIAL CYTOPATHY [None]
  - MYOPATHY [None]
